FAERS Safety Report 5129292-0 (Version None)
Quarter: 2006Q4

REPORT INFORMATION
  Report Type: 
  Country: None (occurrence: None)
  Receive Date: 20061012
  Receipt Date: 20061003
  Transmission Date: 20070319
  Serious: Yes (Other)
  Sender: FDA-Public Use
  Company Number: 2006-02547

PATIENT
  Age: 72 Year
  Sex: Female

DRUGS (3)
  1. VELCADE [Suspect]
     Indication: MULTIPLE MYELOMA
     Dates: start: 20050726, end: 20051019
  2. HYDROCODONE [Concomitant]
  3. ARANESP [Concomitant]

REACTIONS (3)
  - BLOOD IMMUNOGLOBULIN G INCREASED [None]
  - DISEASE PROGRESSION [None]
  - NEUTROPENIA [None]
